FAERS Safety Report 8554403-4 (Version None)
Quarter: 2012Q3

REPORT INFORMATION
  Report Type: 
  Country: None (occurrence: None)
  Receive Date: 20120731
  Receipt Date: 20120723
  Transmission Date: 20120928
  Serious: Yes (Hospitalization)
  Sender: FDA-Public Use
  Company Number: US-009507513-1207USA009848

PATIENT

DRUGS (18)
  1. POTASSIUM CHLORIDE [Concomitant]
  2. SIMVASTATIN [Suspect]
  3. BRICANYL [Suspect]
  4. ZOLPIDEM TATRATE [Suspect]
  5. COZAAR [Suspect]
     Route: 048
  6. ISOPTIN [Suspect]
  7. PREDNISOLONE [Suspect]
  8. SERTRALINE HYDROCHLORIDE [Suspect]
  9. MORPHINE SULFATE [Suspect]
  10. BERODUAL [Suspect]
  11. ACETAMINOPHEN [Suspect]
  12. SPIRIVA [Suspect]
  13. DIGOXIN [Suspect]
  14. PRADAXA [Suspect]
     Dosage: 150 MG, BID
     Route: 048
  15. DUOVENT [Suspect]
  16. FUROSEMIDE [Suspect]
  17. FLUTICASONE PROPIONATE/SALMETEROL [Suspect]
  18. OXAZEPAM [Suspect]

REACTIONS (3)
  - IRON DEFICIENCY ANAEMIA [None]
  - ABDOMINAL PAIN UPPER [None]
  - GASTRIC ULCER [None]
